FAERS Safety Report 5584502-0 (Version None)
Quarter: 2008Q1

REPORT INFORMATION
  Report Type: 
  Country: None (occurrence: None)
  Receive Date: 20080108
  Receipt Date: 20071228
  Transmission Date: 20080703
  Serious: No
  Sender: FDA-Public Use
  Company Number: JP-BRISTOL-MYERS SQUIBB COMPANY-14026611

PATIENT
  Age: 7 Decade
  Sex: Female

DRUGS (3)
  1. TAXOL [Suspect]
     Indication: UTERINE CANCER
     Route: 041
  2. CARBOMERCK [Suspect]
     Indication: UTERINE CANCER
     Route: 041
  3. GRAN [Suspect]
     Route: 041

REACTIONS (1)
  - RHABDOMYOLYSIS [None]
